FAERS Safety Report 16259470 (Version 2)
Quarter: 2019Q3

REPORT INFORMATION
  Report Type: Spontaneous
  Country: JP (occurrence: JP)
  Receive Date: 20190501
  Receipt Date: 20190705
  Transmission Date: 20191004
  Serious: Yes (Death)
  Sender: FDA-Public Use
  Company Number: JP-ROCHE-2310948

PATIENT
  Age: 8 Decade
  Sex: Female

DRUGS (1)
  1. ACTEMRA [Suspect]
     Active Substance: TOCILIZUMAB
     Indication: RHEUMATOID ARTHRITIS
     Route: 058
     Dates: start: 20180301, end: 20190228

REACTIONS (1)
  - Neuroendocrine tumour [Fatal]

NARRATIVE: CASE EVENT DATE: 20190301
